APPROVED DRUG PRODUCT: ACYCLOVIR
Active Ingredient: ACYCLOVIR
Strength: 800MG
Dosage Form/Route: TABLET;ORAL
Application: A074976 | Product #002
Applicant: MYLAN PHARMACEUTICALS INC
Approved: Apr 13, 1998 | RLD: No | RS: No | Type: DISCN